FAERS Safety Report 7312603-5 (Version None)
Quarter: 2011Q1

REPORT INFORMATION
  Report Type: 
  Country: None (occurrence: None)
  Receive Date: 20110224
  Receipt Date: 20100216
  Transmission Date: 20110831
  Serious: No
  Sender: FDA-Public Use
  Company Number: -MYLANLABS-2010S1002661

PATIENT
  Sex: Female

DRUGS (1)
  1. ATENOLOL [Suspect]
     Indication: HYPERTENSION
     Route: 048
     Dates: start: 20100101

REACTIONS (2)
  - INCREASED APPETITE [None]
  - WEIGHT INCREASED [None]
